FAERS Safety Report 9849449 (Version 1)
Quarter: 2013Q4

REPORT INFORMATION
  Report Type: Spontaneous
  Country: US (occurrence: None)
  Receive Date: 20131226
  Receipt Date: 20131226
  Transmission Date: 20140711
  Serious: Yes (Other)
  Sender: FDA-Public Use
  Company Number: PHEH2012US018622

PATIENT
  Age: 65 Year
  Sex: Male

DRUGS (1)
  1. AFINITOR [Suspect]
     Indication: RENAL CANCER
     Dates: start: 20110622, end: 20120906

REACTIONS (5)
  - Neoplasm [None]
  - Fatigue [None]
  - Weight decreased [None]
  - Treatment failure [None]
  - Malignant neoplasm progression [None]
